FAERS Safety Report 5493724-9 (Version None)
Quarter: 2007Q4

REPORT INFORMATION
  Report Type: 
  Country: None (occurrence: None)
  Receive Date: 20071015
  Receipt Date: 20070615
  Transmission Date: 20080405
  Serious: No
  Sender: FDA-Public Use
  Company Number: 2007SP002265

PATIENT
  Age: 50 Year
  Sex: Male
  Weight: 86.1834 kg

DRUGS (5)
  1. LUNESTA [Suspect]
     Indication: INSOMNIA
     Dosage: 3 MG; ORAL, 2 MG; ORAL, 1 MG;  ORAL, 3 MG; ORAL
     Route: 048
     Dates: start: 20060101, end: 20060101
  2. LUNESTA [Suspect]
     Indication: INSOMNIA
     Dosage: 3 MG; ORAL, 2 MG; ORAL, 1 MG;  ORAL, 3 MG; ORAL
     Route: 048
     Dates: start: 20060101, end: 20060101
  3. LUNESTA [Suspect]
     Indication: INSOMNIA
     Dosage: 3 MG; ORAL, 2 MG; ORAL, 1 MG;  ORAL, 3 MG; ORAL
     Route: 048
     Dates: start: 20060101, end: 20060101
  4. LUNESTA [Suspect]
     Indication: INSOMNIA
     Dosage: 3 MG; ORAL, 2 MG; ORAL, 1 MG;  ORAL, 3 MG; ORAL
     Route: 048
     Dates: start: 20070614, end: 20070601
  5. CLONAZEPAM [Suspect]
     Indication: INSOMNIA
     Dosage: 0.5 MG; ORAL
     Route: 048
     Dates: start: 20060101

REACTIONS (3)
  - HANGOVER [None]
  - MIDDLE INSOMNIA [None]
  - PARADOXICAL DRUG REACTION [None]
